FAERS Safety Report 8142215-5 (Version None)
Quarter: 2012Q1

REPORT INFORMATION
  Report Type: 
  Country: None (occurrence: None)
  Receive Date: 20120216
  Receipt Date: 20120211
  Transmission Date: 20120608
  Serious: Yes (Other)
  Sender: FDA-Public Use
  Company Number: GXBR2012US000672

PATIENT
  Sex: Female
  Weight: 65.76 kg

DRUGS (1)
  1. LISINOPRIL [Suspect]
     Dosage: FOETAL DRUG EXPOSURE VIA FATHER

REACTIONS (2)
  - EXPOSURE VIA FATHER [None]
  - ABORTION SPONTANEOUS [None]
